FAERS Safety Report 17199293 (Version 1)
Quarter: 2019Q4

REPORT INFORMATION
  Report Type: Report from Study
  Country: None (occurrence: US)
  Receive Date: 20191225
  Receipt Date: 20191225
  Transmission Date: 20200122
  Serious: Yes (Other)
  Sender: FDA-Public Use
  Company Number: US-ABBVIE-19K-163-2877716-00

PATIENT
  Age: 63 Year
  Sex: Male

DRUGS (1)
  1. HUMIRA [Suspect]
     Active Substance: ADALIMUMAB
     Indication: PSORIATIC ARTHROPATHY
     Route: 058
     Dates: start: 20190616

REACTIONS (10)
  - Post procedural complication [Unknown]
  - Joint stiffness [Unknown]
  - Back pain [Not Recovered/Not Resolved]
  - Gait disturbance [Unknown]
  - Arthralgia [Not Recovered/Not Resolved]
  - Pain [Unknown]
  - Musculoskeletal stiffness [Unknown]
  - Knee operation [Unknown]
  - Loss of personal independence in daily activities [Unknown]
  - Musculoskeletal discomfort [Unknown]

NARRATIVE: CASE EVENT DATE: 2019
